FAERS Safety Report 7161937-6 (Version None)
Quarter: 2010Q4

REPORT INFORMATION
  Report Type: 
  Country: None (occurrence: None)
  Receive Date: 20101215
  Receipt Date: 20100720
  Transmission Date: 20110411
  Serious: Yes (Other)
  Sender: FDA-Public Use
  Company Number: US-PFIZER INC-2010091518

PATIENT
  Sex: Female

DRUGS (1)
  1. LYRICA [Suspect]
     Dosage: UNK

REACTIONS (10)
  - APATHY [None]
  - ASTHENIA [None]
  - CHOKING [None]
  - DECREASED APPETITE [None]
  - EMOTIONAL DISORDER [None]
  - MORBID THOUGHTS [None]
  - OEDEMA PERIPHERAL [None]
  - RESPIRATORY DISORDER [None]
  - WEIGHT INCREASED [None]
  - WHEEZING [None]
